FAERS Safety Report 17708435 (Version 3)
Quarter: 2021Q4

REPORT INFORMATION
  Report Type: Report from Study
  Country: CO (occurrence: CO)
  Receive Date: 20200426
  Receipt Date: 20211021
  Transmission Date: 20220303
  Serious: Yes (Other)
  Sender: FDA-Public Use
  Company Number: NVSC2020CO040037

PATIENT
  Age: 62 Year
  Sex: Male
  Weight: 87 kg

DRUGS (6)
  1. COSENTYX [Suspect]
     Active Substance: SECUKINUMAB
     Indication: Ankylosing spondylitis
     Dosage: 150 MG, QW
     Route: 058
     Dates: start: 20191111
  2. COSENTYX [Suspect]
     Active Substance: SECUKINUMAB
     Dosage: 150 MG, QMO
     Route: 058
  3. METFORMIN [Suspect]
     Active Substance: METFORMIN HYDROCHLORIDE
     Indication: Diabetes mellitus
     Dosage: UNK
     Route: 065
  4. LOSARTAN [Suspect]
     Active Substance: LOSARTAN
     Indication: Hypertension
     Dosage: 50 MG, Q12H (STARTED 10 YEARS AGO)
     Route: 048
  5. VILDAGLIPTIN [Concomitant]
     Active Substance: VILDAGLIPTIN
     Indication: Diabetes mellitus
     Dosage: 50 MG, Q12H (STARTED 2 MONTHS)
     Route: 048
  6. METFORMIN [Concomitant]
     Active Substance: METFORMIN HYDROCHLORIDE
     Indication: Diabetes mellitus
     Dosage: 50 MG, Q12H
     Route: 048

REACTIONS (15)
  - Pterygium [Not Recovered/Not Resolved]
  - Thrombosis [Unknown]
  - Neck pain [Unknown]
  - Spinal pain [Unknown]
  - Back pain [Unknown]
  - Inflammation [Unknown]
  - Influenza [Unknown]
  - COVID-19 [Unknown]
  - Headache [Unknown]
  - Pyrexia [Unknown]
  - Asthenia [Unknown]
  - Pain [Unknown]
  - Blood glucose increased [Unknown]
  - Underweight [Unknown]
  - Rash macular [Unknown]

NARRATIVE: CASE EVENT DATE: 20200101
